FAERS Safety Report 9274817 (Version 2)
Quarter: 2013Q4

REPORT INFORMATION
  Report Type: Spontaneous
  Country: US (occurrence: US)
  Receive Date: 20130507
  Receipt Date: 20131009
  Transmission Date: 20140711
  Serious: Yes (Hospitalization)
  Sender: FDA-Public Use
  Company Number: US-B.I. PHARMACEUTICALS,INC./RIDGEFIELD-2013-BI-12341BP

PATIENT
  Sex: Male
  Weight: 99.79 kg

DRUGS (12)
  1. PRADAXA [Suspect]
     Indication: ANTICOAGULANT THERAPY
     Dosage: 75 MG
     Dates: start: 20110215, end: 20120504
  2. PRADAXA [Suspect]
     Indication: ATRIAL FIBRILLATION
  3. AMIODARONE [Concomitant]
     Dosage: 300 MG
  4. TRAMADOL [Concomitant]
     Dosage: 100 MG
  5. LASIX [Concomitant]
     Dosage: 40 MG
  6. METOPROLOL [Concomitant]
     Dosage: 50 MG
  7. METOLAZONE [Concomitant]
     Dosage: 5 MG
  8. ASPIRIN [Concomitant]
     Dosage: 81 MG
  9. LANTUS INSULIN [Concomitant]
     Route: 058
  10. NOVOLOG FLEXPEN [Concomitant]
  11. TESSALON PERLE [Concomitant]
  12. AMBIEN [Concomitant]
     Dosage: 10 MG

REACTIONS (2)
  - Gastrointestinal haemorrhage [Unknown]
  - Anaemia [Unknown]
